FAERS Safety Report 9190500 (Version 1)
Quarter: 2013Q1

REPORT INFORMATION
  Report Type: Spontaneous
  Country: US (occurrence: None)
  Receive Date: 20120703
  Receipt Date: 20120703
  Transmission Date: 20140127
  Serious: Yes (Other)
  Sender: FDA-Public Use
  Company Number: PHEH2012US008852

PATIENT
  Age: 49 Year
  Sex: Female
  Weight: 84 kg

DRUGS (6)
  1. GILENYA [Suspect]
     Indication: MULTIPLE SCLEROSIS
     Route: 048
     Dates: start: 20120322, end: 20120324
  2. MELATONIN (MELATONIN) [Concomitant]
  3. FLUOXETINE (FLUOXETINE) [Concomitant]
  4. CALCIUM WITH VITAMIN D (CALCIUM PHOSPHATE, CALCIUM SODIUM LACTATE, ERGOCALCIFEROL) [Concomitant]
  5. OXYBUTYNIN (OXYBUTYNIN) [Concomitant]
  6. METHOCARBAMOL (METHOCARBAMOL) [Concomitant]

REACTIONS (1)
  - Dizziness [None]
